FAERS Safety Report 5837923-2 (Version None)
Quarter: 2008Q3

REPORT INFORMATION
  Report Type: 
  Country: None (occurrence: None)
  Receive Date: 20080808
  Receipt Date: 20080729
  Transmission Date: 20090109
  Serious: Yes (Hospitalization)
  Sender: FDA-Public Use
  Company Number: DE-JNJFOC-20080706920

PATIENT
  Age: 65 Year
  Sex: Female

DRUGS (5)
  1. REMICADE [Suspect]
     Indication: RHEUMATOID ARTHRITIS
     Route: 042
  2. KINERET [Concomitant]
  3. ETANERCEPT [Concomitant]
  4. METHOTREXATE [Concomitant]
  5. LEFLUNOMIDE [Concomitant]

REACTIONS (1)
  - OSTEOPOROTIC FRACTURE [None]
